FAERS Safety Report 21628895 (Version 2)
Quarter: 2022Q4

REPORT INFORMATION
  Report Type: Spontaneous
  Country: US (occurrence: US)
  Receive Date: 20221122
  Receipt Date: 20221223
  Transmission Date: 20230113
  Serious: Yes (Hospitalization)
  Sender: FDA-Public Use
  Company Number: US-MALLINCKRODT-T202205964

PATIENT
  Sex: Female

DRUGS (1)
  1. H.P. ACTHAR [Suspect]
     Active Substance: CORTICOTROPIN
     Indication: Sarcoidosis
     Dosage: 1 MILLILITER (80 UNITS), TWICE A WEEK
     Route: 058
     Dates: start: 202203

REACTIONS (1)
  - Chest discomfort [Unknown]

NARRATIVE: CASE EVENT DATE: 20220101
